FAERS Safety Report 8273262-0 (Version None)
Quarter: 2012Q2

REPORT INFORMATION
  Report Type: 
  Country: None (occurrence: None)
  Receive Date: 20120411
  Receipt Date: 20120409
  Transmission Date: 20120825
  Serious: Yes (Other)
  Sender: FDA-Public Use
  Company Number: US-PFIZER INC-2012049975

PATIENT
  Sex: Male

DRUGS (2)
  1. NEURONTIN [Suspect]
     Dosage: UNK
  2. OXYCONTIN [Concomitant]
     Dosage: 10 MG, 2X/DAY, 1 BY MOUTH TWICE A DAY
     Route: 048

REACTIONS (1)
  - ARTHROPATHY [None]
